FAERS Safety Report 12462244 (Version 3)
Quarter: 2016Q3

REPORT INFORMATION
  Report Type: Report from Study
  Country: US (occurrence: US)
  Receive Date: 20160613
  Receipt Date: 20160701
  Transmission Date: 20161109
  Serious: Yes (Death, Hospitalization)
  Sender: FDA-Public Use
  Company Number: US-BIOGEN-2016BI00248082

PATIENT
  Age: 46 Year
  Sex: Female

DRUGS (5)
  1. FENTANYL. [Concomitant]
     Active Substance: FENTANYL
     Indication: HYPOXIA
  2. VERSED [Concomitant]
     Active Substance: MIDAZOLAM HYDROCHLORIDE
     Indication: AGITATION
     Route: 065
  3. TYSABRI [Suspect]
     Active Substance: NATALIZUMAB
     Dosage: INFUSED OVER 1 HOUR
     Route: 042
  4. TYSABRI [Suspect]
     Active Substance: NATALIZUMAB
     Indication: MULTIPLE SCLEROSIS
     Dosage: INFUSED OVER 1 HOUR
     Route: 065
     Dates: start: 20151106
  5. FENTANYL. [Concomitant]
     Active Substance: FENTANYL
     Indication: ASPIRATION
     Route: 065

REACTIONS (7)
  - Suicide attempt [Recovered/Resolved]
  - Depression [Unknown]
  - Underweight [Unknown]
  - Multiple sclerosis [Fatal]
  - Dysphagia [Fatal]
  - Pneumonia aspiration [Fatal]
  - Malnutrition [Unknown]

NARRATIVE: CASE EVENT DATE: 201605
